FAERS Safety Report 12201709 (Version 1)
Quarter: 2016Q1

REPORT INFORMATION
  Report Type: Spontaneous
  Country: US (occurrence: US)
  Receive Date: 20160322
  Receipt Date: 20160322
  Transmission Date: 20160526
  Serious: No
  Sender: FDA-Public Use
  Company Number: US-SA-2015SA222415

PATIENT
  Age: 20 Year
  Sex: Female
  Weight: 44.45 kg

DRUGS (1)
  1. NASACORT ALLERGY 24HR [Suspect]
     Active Substance: TRIAMCINOLONE ACETONIDE
     Dosage: STARTED 3-4 DAYS AGO?2 SPRAYS IN EACH NOSTRIL
     Route: 045

REACTIONS (2)
  - Somnolence [Unknown]
  - Eye disorder [Unknown]
